FAERS Safety Report 9304021 (Version 2)
Quarter: 2014Q1

REPORT INFORMATION
  Report Type: Spontaneous
  Country: US (occurrence: US)
  Receive Date: 20130522
  Receipt Date: 20140114
  Transmission Date: 20141002
  Serious: No
  Sender: FDA-Public Use
  Company Number: US-BAYER-2013-063465

PATIENT
  Age: 43 Year
  Sex: Female
  Weight: 61.22 kg

DRUGS (19)
  1. YASMIN [Suspect]
  2. YAZ [Suspect]
  3. OCELLA [Suspect]
  4. GIANVI [Suspect]
  5. IBUPROFEN [Concomitant]
     Dosage: UNK
     Dates: start: 20120515
  6. TRAMADOL [Concomitant]
     Dosage: UNK
     Dates: start: 20120515
  7. ATIVAN [Concomitant]
     Dosage: UNK
     Dates: start: 20120505
  8. ATIVAN [Concomitant]
     Dosage: UNK
     Dates: start: 20120510
  9. NORCO [Concomitant]
  10. DIFLUCAN [Concomitant]
     Dosage: UNK
     Dates: start: 20120510
  11. BACTRIM [Concomitant]
     Dosage: UNK
     Dates: start: 20120510
  12. MAXALT [Concomitant]
     Dosage: UNK
     Dates: start: 20120418
  13. MIRALAX [Concomitant]
  14. HYDROCODONE/ACETAMINOPHEN [Concomitant]
     Dosage: UNK
     Dates: start: 20120510
  15. ADDERALL XR [Concomitant]
     Dosage: UNK
     Dates: start: 20120508
  16. ADDERALL XR [Concomitant]
     Dosage: UNK
     Dates: start: 20120510
  17. WELLBUTRIN [Concomitant]
  18. CITALOPRAM [Concomitant]
  19. AMITRIPTYLLIN [Concomitant]

REACTIONS (4)
  - Thrombophlebitis superficial [None]
  - Injury [None]
  - Pain [None]
  - Emotional distress [None]
